FAERS Safety Report 14911620 (Version 1)
Quarter: 2018Q2

REPORT INFORMATION
  Report Type: Spontaneous
  Country: US (occurrence: US)
  Receive Date: 20180518
  Receipt Date: 20180518
  Transmission Date: 20180711
  Serious: No
  Sender: FDA-Public Use
  Company Number: US-JNJFOC-20180433151

PATIENT
  Sex: Male

DRUGS (2)
  1. MENS ROGAINE EXTRA STRENGTH [Suspect]
     Active Substance: MINOXIDIL
     Route: 061
  2. MENS ROGAINE EXTRA STRENGTH [Suspect]
     Active Substance: MINOXIDIL
     Indication: ALOPECIA
     Dosage: APPROXIMATELY 1 CAPFUL
     Route: 061

REACTIONS (5)
  - Alopecia [Not Recovered/Not Resolved]
  - Product use in unapproved indication [Unknown]
  - Trichorrhexis [Not Recovered/Not Resolved]
  - Overdose [Unknown]
  - Product administered at inappropriate site [Unknown]
